FAERS Safety Report 6818415-0 (Version None)
Quarter: 2010Q3

REPORT INFORMATION
  Report Type: 
  Country: None (occurrence: None)
  Receive Date: 20100706
  Receipt Date: 20090107
  Transmission Date: 20110219
  Serious: No
  Sender: FDA-Public Use
  Company Number: US-PFIZER INC-2003034343

PATIENT
  Sex: Male
  Weight: 67.13 kg

DRUGS (8)
  1. ZITHROMAX [Suspect]
     Indication: INFECTION
     Dosage: 250 MG/DAY
     Route: 048
     Dates: start: 20030808, end: 20030812
  2. PREDNISONE [Suspect]
     Route: 048
     Dates: end: 20030815
  3. LEVOTHYROXINE SODIUM [Concomitant]
     Route: 048
  4. ZANTAC [Concomitant]
     Route: 048
  5. PAROXETINE HCL [Concomitant]
     Route: 048
     Dates: start: 20030802
  6. DOXEPIN HCL [Concomitant]
     Route: 048
     Dates: start: 20030803
  7. HYDROCORTISONE [Concomitant]
  8. ULOBETASOL PROPIONATE [Concomitant]
     Route: 061

REACTIONS (11)
  - ACNE [None]
  - ARTHRALGIA [None]
  - EAR INFECTION [None]
  - ECZEMA [None]
  - FATIGUE [None]
  - INFECTION [None]
  - INFECTION MASKED [None]
  - MYALGIA [None]
  - PRURITUS [None]
  - RASH [None]
  - SECONDARY ADRENOCORTICAL INSUFFICIENCY [None]
